FAERS Safety Report 9271142 (Version 2)
Quarter: 2014Q1

REPORT INFORMATION
  Report Type: Report from Study
  Country: US (occurrence: US)
  Receive Date: 20130506
  Receipt Date: 20140127
  Transmission Date: 20141002
  Serious: Yes (Hospitalization, Other)
  Sender: FDA-Public Use
  Company Number: PHEH2013US007949

PATIENT
  Age: 67 Year
  Sex: Male

DRUGS (1)
  1. NEORAL [Suspect]
     Indication: RENAL TRANSPLANT
     Dosage: 25 MG, BID
     Route: 048
     Dates: start: 20130104

REACTIONS (3)
  - Myocardial infarction [Unknown]
  - Renal mass [Unknown]
  - Cardiac failure [Unknown]
